FAERS Safety Report 10052634 (Version 1)
Quarter: 2014Q1

REPORT INFORMATION
  Report Type: Spontaneous
  Country: US (occurrence: None)
  Receive Date: 20140331
  Receipt Date: 20140331
  Transmission Date: 20141002
  Serious: Yes (Hospitalization)
  Sender: FDA-Public Use
  Company Number: UTC-043421

PATIENT
  Age: 45 Year
  Sex: Male
  Weight: 69.5 kg

DRUGS (2)
  1. REMODULIN [Suspect]
     Indication: PULMONARY ARTERIAL HYPERTENSION
     Dosage: 23.04 UG/KG (0.016 UG/KG, 1 IN 1 MIN), SUBCUTANEUOUS
     Route: 058
     Dates: start: 20130925
  2. LETAIRIS (AMBRISENTAN) (UNKNOWN) [Concomitant]

REACTIONS (3)
  - Dyspnoea [None]
  - Fluid overload [None]
  - Fluid retention [None]
